FAERS Safety Report 20991860 (Version 4)
Quarter: 2022Q3

REPORT INFORMATION
  Report Type: Spontaneous
  Country: BE (occurrence: BE)
  Receive Date: 20220622
  Receipt Date: 20220819
  Transmission Date: 20221027
  Serious: Yes (Other)
  Sender: FDA-Public Use
  Company Number: BE-BAYER-2022P004684

PATIENT
  Sex: Female

DRUGS (1)
  1. MIRENA [Suspect]
     Active Substance: LEVONORGESTREL
     Dosage: 20?G/DAY
     Route: 015
     Dates: start: 20220609

REACTIONS (4)
  - Device breakage [None]
  - Device issue [None]
  - Complication of device insertion [None]
  - Manufacturing issue [None]

NARRATIVE: CASE EVENT DATE: 20220609
